FAERS Safety Report 7389615-9 (Version None)
Quarter: 2011Q1

REPORT INFORMATION
  Report Type: 
  Country: None (occurrence: None)
  Receive Date: 20110325
  Receipt Date: 20110318
  Transmission Date: 20110831
  Serious: Yes (Other)
  Sender: FDA-Public Use
  Company Number: 017962

PATIENT
  Sex: Female
  Weight: 60 kg

DRUGS (15)
  1. HYDROCHLOROTHIAZDE TAB [Concomitant]
  2. PARKINSAN (PARKINSAN) [Suspect]
     Indication: PARKINSON'S DISEASE
     Dosage: (10 MG TID) ; (10 MG BID) ; (10 MG QD)
     Dates: start: 20080708, end: 20080714
  3. PARKINSAN (PARKINSAN) [Suspect]
     Indication: PARKINSON'S DISEASE
     Dosage: (10 MG TID) ; (10 MG BID) ; (10 MG QD)
     Dates: start: 20080422, end: 20080707
  4. PARKINSAN (PARKINSAN) [Suspect]
     Indication: PARKINSON'S DISEASE
     Dosage: (10 MG TID) ; (10 MG BID) ; (10 MG QD)
     Dates: start: 20080715, end: 20080721
  5. AMANTADINE HCL [Concomitant]
  6. NEUPRO [Suspect]
     Indication: PARKINSON'S DISEASE
     Dosage: SEE IMAGE
     Route: 062
     Dates: start: 20070630, end: 20070702
  7. NEUPRO [Suspect]
     Indication: PARKINSON'S DISEASE
     Dosage: SEE IMAGE
     Route: 062
     Dates: start: 20070703, end: 20070829
  8. NEUPRO [Suspect]
     Indication: PARKINSON'S DISEASE
     Dosage: SEE IMAGE
     Route: 062
     Dates: start: 20070830, end: 20080422
  9. NEUPRO [Suspect]
     Indication: PARKINSON'S DISEASE
     Dosage: SEE IMAGE
     Route: 062
     Dates: start: 20061011, end: 20061025
  10. NEUPRO [Suspect]
     Indication: PARKINSON'S DISEASE
     Dosage: SEE IMAGE
     Route: 062
     Dates: start: 20061026, end: 20061108
  11. NEUPRO [Suspect]
     Indication: PARKINSON'S DISEASE
     Dosage: SEE IMAGE
     Route: 062
     Dates: start: 20080423, end: 20081010
  12. NEUPRO [Suspect]
     Indication: PARKINSON'S DISEASE
     Dosage: SEE IMAGE
     Route: 062
     Dates: start: 20061109, end: 20061130
  13. NEUPRO [Suspect]
     Indication: PARKINSON'S DISEASE
     Dosage: SEE IMAGE
     Route: 062
     Dates: start: 20061201, end: 20070629
  14. AMANTADINE HYDROCHLORIDE [Suspect]
     Indication: PARKINSON'S DISEASE
     Dosage: (75 MG, 0.5 X 150MG)
     Dates: start: 20080323, end: 20080422
  15. REQUIP [Concomitant]

REACTIONS (1)
  - ELECTROCARDIOGRAM QT PROLONGED [None]
